FAERS Safety Report 10908743 (Version 6)
Quarter: 2015Q2

REPORT INFORMATION
  Report Type: Spontaneous
  Country: US (occurrence: US)
  Receive Date: 20150312
  Receipt Date: 20150506
  Transmission Date: 20150821
  Serious: No
  Sender: FDA-Public Use
  Company Number: US-PFIZER INC-2015086038

PATIENT
  Age: 55 Year
  Sex: Male
  Weight: 109 kg

DRUGS (3)
  1. NEURONTIN [Concomitant]
     Active Substance: GABAPENTIN
     Dosage: 100 MG ONE IN THE MORNING AND TWO IN THE EVENING
     Route: 048
     Dates: start: 201501
  2. LYRICA [Suspect]
     Active Substance: PREGABALIN
     Indication: NEUROPATHY PERIPHERAL
     Dosage: 100 MG, 3X/DAY
     Route: 048
     Dates: start: 201311, end: 20150214
  3. NEURONTIN [Concomitant]
     Active Substance: GABAPENTIN
     Indication: PERIPHERAL COLDNESS
     Dosage: UNK
     Dates: start: 20141220

REACTIONS (1)
  - Peripheral coldness [Unknown]

NARRATIVE: CASE EVENT DATE: 201502
